FAERS Safety Report 4332454-3 (Version None)
Quarter: 2004Q2

REPORT INFORMATION
  Report Type: 
  Country: None (occurrence: None)
  Receive Date: 20040401
  Receipt Date: 20040319
  Transmission Date: 20050107
  Serious: Yes (Hospitalization)
  Sender: FDA-Public Use
  Company Number: HQWYE166819FEB04

PATIENT
  Age: 76 Year
  Sex: Female

DRUGS (12)
  1. CORDARONE [Suspect]
     Indication: ARRHYTHMIA
     Dosage: 200 MG 1X PER 1 DAY
     Route: 048
     Dates: end: 20040202
  2. CORDARONE [Suspect]
     Indication: CARDIAC DISORDER
     Dosage: 200 MG 1X PER 1 DAY
     Route: 048
     Dates: end: 20040202
  3. COZAAR [Concomitant]
  4. ALPRESS (PRAZOSIN HYDROCHLORIDE) [Concomitant]
  5. PRAVASTATIN SODIUM [Concomitant]
  6. LASIX [Concomitant]
  7. POTASSIUM CHLORIDE [Concomitant]
  8. LEVOTHYROXINE SODIUM [Concomitant]
  9. OMEPRAZOLE [Concomitant]
  10. PREVISCAN (FLUINDIONE) [Concomitant]
  11. TRAMADOL HCL [Concomitant]
  12. DUPHALAC [Concomitant]

REACTIONS (5)
  - ANTIBODY TEST ABNORMAL [None]
  - LUNG DISORDER [None]
  - PNEUMONITIS [None]
  - SJOGREN'S SYNDROME [None]
  - WEIGHT DECREASED [None]
